FAERS Safety Report 23791321 (Version 1)
Quarter: 2024Q2

REPORT INFORMATION
  Report Type: Spontaneous
  Country: CN (occurrence: CN)
  Receive Date: 20240428
  Receipt Date: 20240428
  Transmission Date: 20240715
  Serious: Yes (Hospitalization, Other)
  Sender: FDA-Public Use
  Company Number: CN-Jiangsu Hansoh Pharmaceutical Co., Ltd-2156179

PATIENT
  Age: 76 Year
  Sex: Female
  Weight: 62 kg

DRUGS (2)
  1. PEMETREXED [Suspect]
     Active Substance: PEMETREXED
     Indication: Lung neoplasm malignant
     Route: 041
     Dates: start: 20240402, end: 20240402
  2. GEFITINIB [Suspect]
     Active Substance: GEFITINIB
     Route: 048
     Dates: start: 20240405, end: 20240405

REACTIONS (3)
  - Agranulocytosis [Recovering/Resolving]
  - Hypokalaemia [Recovering/Resolving]
  - Platelet count decreased [Recovering/Resolving]

NARRATIVE: CASE EVENT DATE: 20240408
